FAERS Safety Report 5091880-8 (Version None)
Quarter: 2006Q3

REPORT INFORMATION
  Report Type: 
  Country: None (occurrence: None)
  Receive Date: 20060825
  Receipt Date: 20060815
  Transmission Date: 20061208
  Serious: Yes (Other)
  Sender: FDA-Public Use
  Company Number: 2006088400

PATIENT
  Age: 42 Year
  Sex: Male

DRUGS (5)
  1. LYRICA [Suspect]
     Indication: GENERALISED ANXIETY DISORDER
     Dosage: 450 MG (1 IN 1 D)
  2. CLOZAPINE [Suspect]
     Indication: DRUG USE FOR UNKNOWN INDICATION
  3. CLOZARIL [Concomitant]
  4. HALOPERIDOL [Concomitant]
  5. LORAZEPAM [Concomitant]

REACTIONS (8)
  - APATHY [None]
  - DEPRESSION [None]
  - DRUG INEFFECTIVE [None]
  - FATIGUE [None]
  - GENERALISED ANXIETY DISORDER [None]
  - PARASOMNIA [None]
  - SLEEP WALKING [None]
  - SOCIAL AVOIDANT BEHAVIOUR [None]
